FAERS Safety Report 22604881 (Version 1)
Quarter: 2023Q2

REPORT INFORMATION
  Report Type: Spontaneous
  Country: US (occurrence: US)
  Receive Date: 20230615
  Receipt Date: 20230615
  Transmission Date: 20230722
  Serious: Yes (Other)
  Sender: FDA-Public Use
  Company Number: US-STRIDES ARCOLAB LIMITED-2023SP009132

PATIENT
  Age: 14 Year
  Sex: Male

DRUGS (8)
  1. PREDNISOLONE [Suspect]
     Active Substance: PREDNISOLONE
     Indication: Rosai-Dorfman syndrome
     Dosage: 0.4 MILLIGRAM/KILOGRAM/DAY (LOW DOSE)
     Route: 065
  2. METHOTREXATE [Suspect]
     Active Substance: METHOTREXATE
     Indication: Rosai-Dorfman syndrome
     Dosage: UNK
     Route: 065
  3. METHOTREXATE [Suspect]
     Active Substance: METHOTREXATE
     Dosage: UNK
     Route: 065
  4. METHOTREXATE [Suspect]
     Active Substance: METHOTREXATE
     Dosage: UNK
     Route: 065
  5. INDOMETHACIN [Suspect]
     Active Substance: INDOMETHACIN
     Indication: Rosai-Dorfman syndrome
     Dosage: UNK
     Route: 065
  6. MERCAPTOPURINE [Suspect]
     Active Substance: MERCAPTOPURINE
     Indication: Rosai-Dorfman syndrome
     Dosage: UNK
     Route: 065
  7. MERCAPTOPURINE [Suspect]
     Active Substance: MERCAPTOPURINE
     Dosage: UNK
     Route: 065
  8. SIROLIMUS [Suspect]
     Active Substance: SIROLIMUS
     Indication: Rosai-Dorfman syndrome
     Dosage: UNK
     Route: 065

REACTIONS (3)
  - Disease progression [Unknown]
  - Drug ineffective [Unknown]
  - Off label use [Unknown]
